FAERS Safety Report 8048841-6 (Version None)
Quarter: 2011Q4

REPORT INFORMATION
  Report Type: 
  Country: None (occurrence: None)
  Receive Date: 20111209
  Receipt Date: 20110823
  Transmission Date: 20120403
  Serious: No
  Sender: FDA-Public Use
  Company Number: 2011SP039864

PATIENT
  Age: 50 Year
  Sex: Female
  Weight: 83.9154 kg

DRUGS (22)
  1. VICTRELIS [Suspect]
     Indication: PRODUCT USED FOR UNKNOWN INDICATION
     Dosage: 600 MG; TID; PO
  2. PREMARIN [Concomitant]
  3. MULTI-VITAMIN [Concomitant]
  4. ASPIRIN [Concomitant]
  5. BENADRYL [Concomitant]
  6. LORAZEPAM [Concomitant]
  7. CEFTIN [Concomitant]
  8. VERAMYST [Concomitant]
  9. TRIAM/HCZT [Concomitant]
  10. IBUPROFEN [Concomitant]
  11. ASTERPRO [Concomitant]
  12. ADVAIR DISKUS 100/50 [Concomitant]
  13. SUDAFED 12 HOUR [Concomitant]
  14. CLARITIN [Concomitant]
  15. PEGASYS [Suspect]
     Indication: PRODUCT USED FOR UNKNOWN INDICATION
     Dosage: 180 MCG;QM;SC
     Route: 058
  16. RIBAVIRIN [Suspect]
     Indication: PRODUCT USED FOR UNKNOWN INDICATION
     Dosage: 200 MG; PO
     Route: 048
  17. NAPROXEN [Concomitant]
  18. CLINDAMYCIN [Concomitant]
  19. PRILOSEC [Concomitant]
  20. ALLEGRA [Concomitant]
  21. MAXAIR [Concomitant]
  22. ACETAMINOPHEN [Concomitant]

REACTIONS (2)
  - DYSGEUSIA [None]
  - ANAEMIA [None]
